FAERS Safety Report 11334657 (Version 1)
Quarter: 2015Q3

REPORT INFORMATION
  Report Type: Spontaneous
  Country: US (occurrence: US)
  Receive Date: 20150804
  Receipt Date: 20150804
  Transmission Date: 20151125
  Serious: No
  Sender: FDA-Public Use
  Company Number: US-TEVA-569596USA

PATIENT
  Sex: Male

DRUGS (2)
  1. VENLAFAXINE [Suspect]
     Active Substance: VENLAFAXINE HYDROCHLORIDE
     Indication: DEPRESSION
     Dosage: 150 MILLIGRAM DAILY;
     Route: 065
  2. PRIMIDONE. [Concomitant]
     Active Substance: PRIMIDONE

REACTIONS (9)
  - Feeling abnormal [Unknown]
  - Constipation [Unknown]
  - Agitation [Unknown]
  - Tremor [Unknown]
  - Drug ineffective [Unknown]
  - Depression [Unknown]
  - Arthritis [Unknown]
  - Abdominal discomfort [Unknown]
  - Drug effect increased [Unknown]
